FAERS Safety Report 16343143 (Version 1)
Quarter: 2019Q2

REPORT INFORMATION
  Report Type: Spontaneous
  Country: US (occurrence: US)
  Receive Date: 20190417
  Receipt Date: 20190417
  Transmission Date: 20190711
  Serious: No
  Sender: FDA-Public Use
  Company Number: None

PATIENT
  Age: 88 Year
  Sex: Male

DRUGS (5)
  1. ABIRATERONE 250MG APOTEX [Suspect]
     Active Substance: ABIRATERONE
     Indication: BONE CANCER
     Route: 048
     Dates: start: 20180213
  2. ABIRATERONE 250MG APOTEX [Suspect]
     Active Substance: ABIRATERONE
     Indication: PROSTATOMEGALY
     Route: 048
     Dates: start: 20180213
  3. ABIRATERONE 250MG APOTEX [Suspect]
     Active Substance: ABIRATERONE
     Indication: PRODUCT USED FOR UNKNOWN INDICATION
     Route: 048
     Dates: start: 20180213
  4. ABIRATERONE 250MG APOTEX [Suspect]
     Active Substance: ABIRATERONE
     Indication: PROSTATE CANCER
     Route: 048
     Dates: start: 20180213
  5. TYLENOL [Concomitant]
     Active Substance: ACETAMINOPHEN

REACTIONS (9)
  - Pain in extremity [None]
  - Product substitution issue [None]
  - Peripheral coldness [None]
  - Chest pain [None]
  - Fatigue [None]
  - Pyrexia [None]
  - Asthenia [None]
  - Musculoskeletal pain [None]
  - Blood pressure increased [None]

NARRATIVE: CASE EVENT DATE: 20190301
